FAERS Safety Report 12302513 (Version 1)
Quarter: 2016Q2

REPORT INFORMATION
  Report Type: Spontaneous
  Country: US (occurrence: US)
  Receive Date: 20160425
  Receipt Date: 20160425
  Transmission Date: 20160815
  Serious: Yes (Hospitalization)
  Sender: FDA-Public Use
  Company Number: US-SA-2015SA063042

PATIENT
  Age: 75 Year
  Sex: Female
  Weight: 64.86 kg

DRUGS (14)
  1. LOVENOX [Suspect]
     Active Substance: ENOXAPARIN SODIUM
     Indication: DEEP VEIN THROMBOSIS
     Route: 065
     Dates: start: 20150226, end: 20150310
  2. LORAZEPAM. [Concomitant]
     Active Substance: LORAZEPAM
  3. PAROXETINE. [Concomitant]
     Active Substance: PAROXETINE
  4. TYLENOL [Concomitant]
     Active Substance: ACETAMINOPHEN
  5. FLONASE [Concomitant]
     Active Substance: FLUTICASONE PROPIONATE
     Dosage: 50 MCG/ACTUATION NASAL SPRAY
  6. SYMBICORT [Concomitant]
     Active Substance: BUDESONIDE\FORMOTEROL FUMARATE DIHYDRATE
  7. NEULASTA [Concomitant]
     Active Substance: PEGFILGRASTIM
  8. ZEVALIN [Concomitant]
     Active Substance: IBRITUMOMAB TIUXETAN
     Dates: start: 20050125
  9. IMBRUVICA [Concomitant]
     Active Substance: IBRUTINIB
  10. OXYCODONE [Concomitant]
     Active Substance: OXYCODONE
  11. DECADRON [Concomitant]
     Active Substance: DEXAMETHASONE
  12. ALLOPURINOL. [Concomitant]
     Active Substance: ALLOPURINOL
  13. DEXAMETHASONE. [Concomitant]
     Active Substance: DEXAMETHASONE
  14. SIMVASTATIN. [Concomitant]
     Active Substance: SIMVASTATIN

REACTIONS (1)
  - Haematoma [Recovered/Resolved]

NARRATIVE: CASE EVENT DATE: 20150310
